FAERS Safety Report 4539384-2 (Version None)
Quarter: 2004Q4

REPORT INFORMATION
  Report Type: 
  Country: None (occurrence: None)
  Receive Date: 20041222
  Receipt Date: 20041210
  Transmission Date: 20050328
  Serious: Yes (Hospitalization)
  Sender: FDA-Public Use
  Company Number: RS004884-F

PATIENT
  Age: 83 Year
  Sex: Female

DRUGS (10)
  1. RABEPRAZOLE SODIUM [Suspect]
     Dosage: ORAL
     Route: 048
  2. FOSAMAX [Suspect]
     Dosage: 1 IN 1 D, ORAL
     Route: 048
  3. FEMARA [Suspect]
     Dosage: 1 IN 7 D, ORAL
     Route: 048
  4. PREDNISONE TAB [Suspect]
     Dosage: ORAL
     Route: 048
  5. METHOTREXATE [Suspect]
     Dosage: ORAL
     Route: 048
  6. HYDROSOL POLYVITAMINE (MULTIVITAMINS) [Concomitant]
  7. DUOVENT [Concomitant]
  8. NORMISON (TEMAZEPAM) [Concomitant]
  9. DURAGESIC [Concomitant]
  10. ATARAX [Concomitant]

REACTIONS (5)
  - ACUTE RESPIRATORY FAILURE [None]
  - CHEST X-RAY ABNORMAL [None]
  - HEPATIC ENZYME INCREASED [None]
  - MALNUTRITION [None]
  - THROMBOCYTOPENIA [None]
